FAERS Safety Report 5913344-9 (Version None)
Quarter: 2008Q4

REPORT INFORMATION
  Report Type: 
  Country: None (occurrence: None)
  Receive Date: 20081009
  Receipt Date: 20080929
  Transmission Date: 20090506
  Serious: Yes (Other)
  Sender: FDA-Public Use
  Company Number: PHHY2008JP13761

PATIENT
  Sex: Female
  Weight: 35 kg

DRUGS (11)
  1. ZOMETA [Suspect]
     Indication: BONE LESION
     Dosage: 4 MG, QMO
     Route: 042
     Dates: start: 20060703, end: 20061205
  2. ZOMETA [Suspect]
     Dosage: 4 MG, QMO
     Route: 030
     Dates: start: 20070628, end: 20080501
  3. BLOPRESS [Concomitant]
     Indication: HYPERTENSION
     Dosage: 4 MG
     Dates: start: 20060508
  4. NORVASC [Concomitant]
     Indication: HYPERTENSION
     Dosage: 5 MG
     Route: 048
     Dates: start: 20060508
  5. LIPOVAS ^BANYU^ [Concomitant]
     Indication: HYPERLIPIDAEMIA
     Dosage: 5 MG
     Route: 048
     Dates: start: 20060508
  6. ALFAROL [Concomitant]
     Indication: OSTEOPOROSIS
     Dosage: 1 UG
     Route: 048
     Dates: start: 20060508
  7. LOXONIN [Concomitant]
     Indication: PAIN
     Dosage: 120 MG
     Route: 048
     Dates: start: 20060508
  8. MUCOSTA [Concomitant]
     Indication: GASTRITIS
     Dosage: 200 MG
     Route: 048
     Dates: start: 20060508
  9. ONCOVIN [Concomitant]
     Indication: BONE LESION
     Dosage: 1 MG
     Dates: start: 20071127, end: 20080405
  10. CYMERIN [Concomitant]
     Indication: BONE LESION
     Dosage: 50 MG
     Dates: start: 20071127, end: 20080405
  11. ALKERAN [Concomitant]
     Indication: BONE LESION
     Dosage: 8 MG
     Route: 048
     Dates: start: 20060508, end: 20080405

REACTIONS (5)
  - BONE DISORDER [None]
  - DENTAL CARIES [None]
  - OSTEONECROSIS [None]
  - PERIODONTITIS [None]
  - TOOTH EXTRACTION [None]
